FAERS Safety Report 14146940 (Version 1)
Quarter: 2017Q4

REPORT INFORMATION
  Report Type: Spontaneous
  Country: CN (occurrence: CN)
  Receive Date: 20171031
  Receipt Date: 20171031
  Transmission Date: 20180321
  Serious: Yes (Hospitalization, Other)
  Sender: FDA-Public Use
  Company Number: CN-ELI_LILLY_AND_COMPANY-CN201710010915

PATIENT
  Age: 64 Year
  Sex: Male
  Weight: 57 kg

DRUGS (4)
  1. PEMETREXED. [Suspect]
     Active Substance: PEMETREXED
     Dosage: 0.84 G, CYCLICAL
     Route: 065
     Dates: start: 20160618
  2. MULTIVITAMIN                       /00097801/ [Concomitant]
     Active Substance: VITAMINS
     Indication: PRODUCT USED FOR UNKNOWN INDICATION
  3. CARBOPLATIN. [Suspect]
     Active Substance: CARBOPLATIN
     Indication: LUNG ADENOCARCINOMA
     Dosage: 500 MG, CYCLICAL
     Route: 065
     Dates: start: 20160507, end: 20160528
  4. PEMETREXED. [Suspect]
     Active Substance: PEMETREXED
     Indication: LUNG ADENOCARCINOMA
     Dosage: 0.9 G, CYCLICAL
     Dates: start: 20160507, end: 20160528

REACTIONS (10)
  - Bone marrow failure [Recovered/Resolved]
  - Nausea [Recovering/Resolving]
  - Pigmentation disorder [Recovered/Resolved]
  - Renal impairment [Unknown]
  - Skin exfoliation [Recovered/Resolved]
  - Diarrhoea [Recovering/Resolving]
  - Oral herpes [Recovering/Resolving]
  - Decreased appetite [Recovering/Resolving]
  - Pyrexia [Recovered/Resolved]
  - Discomfort [Recovering/Resolving]

NARRATIVE: CASE EVENT DATE: 20160528
